FAERS Safety Report 5105454-3 (Version None)
Quarter: 2006Q3

REPORT INFORMATION
  Report Type: 
  Country: None (occurrence: None)
  Receive Date: 20060915
  Receipt Date: 20060628
  Transmission Date: 20061208
  Serious: No
  Sender: FDA-Public Use
  Company Number: US-GLAXOSMITHKLINE-A0610651A

PATIENT
  Age: 42 Year
  Sex: Male

DRUGS (5)
  1. AVANDARYL [Suspect]
     Dosage: 1TAB TWICE PER DAY
     Route: 048
     Dates: start: 20060621
  2. NPH INSULIN [Concomitant]
  3. PANCREATIC ENZYMES [Concomitant]
  4. ATENOLOL [Concomitant]
  5. DIOVAN [Concomitant]

REACTIONS (1)
  - DRUG INEFFECTIVE [None]
